FAERS Safety Report 12282994 (Version 1)
Quarter: 2016Q2

REPORT INFORMATION
  Report Type: Spontaneous
  Country: BR (occurrence: BR)
  Receive Date: 20160419
  Receipt Date: 20160419
  Transmission Date: 20160815
  Serious: Yes (Other)
  Sender: FDA-Public Use
  Company Number: BR-GILEAD-2016-0207699

PATIENT
  Sex: Male

DRUGS (3)
  1. DIPROSALIC [Concomitant]
     Active Substance: BETAMETHASONE DIPROPIONATE
     Indication: DERMATITIS
     Dosage: UNK
     Dates: start: 20160115
  2. DACLATASVIR. [Concomitant]
     Active Substance: DACLATASVIR
     Indication: HEPATITIS C
     Dosage: 60 MG, UNK
  3. SOVALDI [Suspect]
     Active Substance: SOFOSBUVIR
     Indication: HEPATITIS C
     Dosage: 400 MG, UNK
     Route: 065
     Dates: start: 20160114, end: 20160406

REACTIONS (11)
  - Seborrhoea [Not Recovered/Not Resolved]
  - Fatigue [Unknown]
  - Arrhythmia [Unknown]
  - Decreased appetite [Unknown]
  - Nervousness [Not Recovered/Not Resolved]
  - Pruritus [Not Recovered/Not Resolved]
  - Emotional disorder [Unknown]
  - Dry skin [Not Recovered/Not Resolved]
  - Anxiety [Not Recovered/Not Resolved]
  - Rash macular [Not Recovered/Not Resolved]
  - Polyuria [Unknown]

NARRATIVE: CASE EVENT DATE: 2016
